FAERS Safety Report 5041509-X (Version None)
Quarter: 2006Q2

REPORT INFORMATION
  Report Type: 
  Country: None (occurrence: None)
  Receive Date: 20060628
  Receipt Date: 20060615
  Transmission Date: 20061013
  Serious: Yes (Other)
  Sender: FDA-Public Use
  Company Number: B0427518A

PATIENT
  Age: 43 Year
  Sex: Female

DRUGS (7)
  1. WELLBUTRIN [Suspect]
     Indication: DEPRESSION
  2. MEMANTINE HYDROCHLORIDE (MEMANTINE HYDROCHLORIDE) [Suspect]
  3. RILUZOLE (RILUZOLE) [Suspect]
  4. LITHIUM SALT [Concomitant]
  5. AMOXAPINE [Concomitant]
  6. TIAGABINE HYDROCHLORIDE [Concomitant]
  7. DIAZEPAM [Concomitant]

REACTIONS (5)
  - AURA [None]
  - DRUG INTERACTION [None]
  - HALLUCINATION, VISUAL [None]
  - INTENTIONAL SELF-INJURY [None]
  - LACERATION [None]
